FAERS Safety Report 6973019-4 (Version None)
Quarter: 2010Q3

REPORT INFORMATION
  Report Type: 
  Country: None (occurrence: None)
  Receive Date: 20100907
  Receipt Date: 20100823
  Transmission Date: 20110219
  Serious: Yes (Death)
  Sender: FDA-Public Use
  Company Number: 1000015837

PATIENT
  Age: 85 Year
  Sex: Male
  Weight: 80 kg

DRUGS (3)
  1. MEMANTINE HCL [Suspect]
     Indication: DEMENTIA ALZHEIMER'S TYPE
     Dosage: ORAL
     Route: 048
     Dates: start: 20040501, end: 20051001
  2. DONEPEZIL HCL [Concomitant]
  3. TIAPRID [Concomitant]

REACTIONS (6)
  - BRONCHOPNEUMONIA [None]
  - DECUBITUS ULCER [None]
  - DIABETIC NEPHROPATHY [None]
  - FALL [None]
  - PLEURAL EFFUSION [None]
  - RENAL IMPAIRMENT [None]
